FAERS Safety Report 4759907-8 (Version None)
Quarter: 2005Q3

REPORT INFORMATION
  Report Type: 
  Country: None (occurrence: None)
  Receive Date: 20050831
  Receipt Date: 20050831
  Transmission Date: 20060218
  Serious: Yes (Hospitalization)
  Sender: FDA-Public Use
  Company Number: None

PATIENT
  Age: 50 Year
  Sex: Male

DRUGS (1)
  1. BACLOFEN [Suspect]
     Indication: BACK PAIN
     Dosage: 1000 MICROGRAMS DAILY IT
     Route: 037

REACTIONS (2)
  - DRUG TOXICITY [None]
  - HYPOAESTHESIA [None]
